FAERS Safety Report 24112938 (Version 1)
Quarter: 2024Q3

REPORT INFORMATION
  Report Type: Spontaneous
  Country: CN (occurrence: CN)
  Receive Date: 20240719
  Receipt Date: 20240719
  Transmission Date: 20241016
  Serious: Yes (Hospitalization, Other)
  Sender: MERCK
  Company Number: CN-009507513-2407CHN008866

PATIENT
  Age: 32 Year
  Sex: Male
  Weight: 90 kg

DRUGS (2)
  1. CILASTATIN SODIUM\IMIPENEM [Suspect]
     Active Substance: CILASTATIN SODIUM\IMIPENEM
     Indication: Product used for unknown indication
     Dosage: 0.5 G, Q6H
     Route: 041
     Dates: start: 20240621, end: 20240626
  2. SODIUM CHLORIDE [Concomitant]
     Active Substance: SODIUM CHLORIDE
     Dosage: 50 ML, Q6H
     Route: 041
     Dates: start: 20240621

REACTIONS (5)
  - Epilepsy [Recovering/Resolving]
  - Metabolic encephalopathy [Unknown]
  - Cerebrovascular accident [Unknown]
  - Alcohol withdrawal syndrome [Unknown]
  - Intracranial infection [Unknown]

NARRATIVE: CASE EVENT DATE: 20240601
